FAERS Safety Report 8550136 (Version 6)
Quarter: 2012Q4

REPORT INFORMATION
  Report Type: Report from Study
  Country: JP (occurrence: JP)
  Receive Date: 20120507
  Receipt Date: 20121203
  Transmission Date: 20130627
  Serious: Yes (Hospitalization, Other)
  Sender: FDA-Public Use
  Company Number: JP-VERTEX PHARMACEUTICAL INC.-AE-2012-006213

PATIENT
  Age: 65 Year
  Sex: Male

DRUGS (22)
  1. VX-950 (TELAPREVIR) [Suspect]
     Indication: CHRONIC HEPATITIS C
     Dosage: 2250 mg, qd
     Route: 048
     Dates: start: 20120216, end: 20120426
  2. PEGINTRON                          /01543001/ [Suspect]
     Indication: CHRONIC HEPATITIS C
     Dosage: 1.5 ?g/kg, qw
     Route: 058
     Dates: start: 20120216, end: 20120726
  3. REBETOL [Suspect]
     Indication: CHRONIC HEPATITIS C
     Dosage: 800 mg, qd
     Route: 048
     Dates: start: 20120216, end: 20120315
  4. REBETOL [Suspect]
     Dosage: 600 mg, UNK
     Route: 048
     Dates: start: 20120316, end: 20120404
  5. REBETOL [Suspect]
     Dosage: 400 mg, qd
     Route: 048
     Dates: start: 20120405, end: 20120801
  6. LENDORMIN [Concomitant]
     Dosage: UNK mg, UNK
     Route: 048
  7. TAKEPRON [Concomitant]
     Route: 048
     Dates: start: 20120220, end: 20120308
  8. PREDONINE [Concomitant]
     Route: 048
     Dates: start: 20120221, end: 20120226
  9. AMLODIPINE [Concomitant]
     Dosage: 5 mg, qd
     Route: 048
  10. MAINHEART [Concomitant]
     Dosage: 5 mg, UNK
     Route: 048
  11. GLIMEPIRIDE [Concomitant]
     Dosage: 3 mg, qd
     Route: 048
     Dates: end: 20120614
  12. GLIMEPIRIDE [Concomitant]
     Dosage: 1 UNK, UNK
     Route: 048
     Dates: start: 20120615, end: 20120620
  13. GLIMEPIRIDE [Concomitant]
     Dosage: 1 UNK, UNK
     Route: 048
     Dates: start: 20120621, end: 20120628
  14. MEIBIS [Concomitant]
     Dosage: UNK UNK, qd
     Route: 048
  15. NELBIS [Concomitant]
     Dosage: 250 mg, qd
     Route: 048
  16. TALION                             /01587402/ [Concomitant]
     Dosage: UNK
     Route: 048
  17. ALESION [Concomitant]
     Route: 048
  18. PARIET [Concomitant]
     Dosage: 10 mg, qd
     Route: 048
     Dates: start: 20120426, end: 20120525
  19. JANUVIA [Concomitant]
     Dosage: 50 mg, qd
     Route: 048
     Dates: start: 20120629, end: 20120705
  20. HUMALOG [Concomitant]
     Dosage: 16 ut, qd
     Route: 058
     Dates: start: 20120510
  21. RIKKUNSHITO [Concomitant]
     Dosage: 7.5 mg, qd
     Route: 048
     Dates: start: 20120308
  22. TSUMURA [Concomitant]
     Dosage: 7.5 mg, qd
     Route: 048
     Dates: end: 20120621

REACTIONS (15)
  - White blood cell count decreased [Not Recovered/Not Resolved]
  - White blood cell count decreased [Recovered/Resolved]
  - Skin disorder [Unknown]
  - Drug eruption [Recovered/Resolved]
  - Cellulitis [Recovered/Resolved]
  - Malaise [None]
  - Headache [None]
  - Influenza like illness [None]
  - Arthralgia [None]
  - Hot flush [None]
  - Insomnia [None]
  - Pyrexia [None]
  - Nausea [None]
  - Blood uric acid increased [None]
  - Haemoglobin decreased [None]
